FAERS Safety Report 5086828-6 (Version None)
Quarter: 2006Q3

REPORT INFORMATION
  Report Type: 
  Country: None (occurrence: None)
  Receive Date: 20060823
  Receipt Date: 20060320
  Transmission Date: 20061208
  Serious: Yes (Other)
  Sender: FDA-Public Use
  Company Number: IT-BOEHRINGER INGELHEIM GMBH, GERMANY-2006-DE-01462GD

PATIENT
  Age: 41 Year
  Sex: Male

DRUGS (5)
  1. NEVIRAPINE [Suspect]
     Indication: RETROVIRAL INFECTION
  2. DIDANOSINE [Suspect]
     Indication: RETROVIRAL INFECTION
  3. STAVUDINE [Suspect]
     Indication: RETROVIRAL INFECTION
  4. KALETRA [Suspect]
     Indication: RETROVIRAL INFECTION
  5. LAMIVUDINE [Suspect]
     Indication: RETROVIRAL INFECTION

REACTIONS (3)
  - BLOOD HIV RNA INCREASED [None]
  - ERYTHEMA [None]
  - PRURITUS [None]
